FAERS Safety Report 18515138 (Version 1)
Quarter: 2020Q4

REPORT INFORMATION
  Report Type: Spontaneous
  Country: US (occurrence: US)
  Receive Date: 20201118
  Receipt Date: 20201118
  Transmission Date: 20210114
  Serious: Yes (Hospitalization)
  Sender: FDA-Public Use
  Company Number: US-JNJFOC-20201115327

PATIENT

DRUGS (2)
  1. BENADRYL [Suspect]
     Active Substance: DIPHENHYDRAMINE HYDROCHLORIDE
     Indication: EUPHORIC MOOD
     Route: 065
  2. BENADRYL [Suspect]
     Active Substance: DIPHENHYDRAMINE HYDROCHLORIDE
     Route: 045

REACTIONS (6)
  - Intentional overdose [Unknown]
  - Urinary retention [Unknown]
  - Electrocardiogram abnormal [Unknown]
  - Seizure [Unknown]
  - Heart rate increased [Unknown]
  - Intentional product misuse [Unknown]
